FAERS Safety Report 10647651 (Version 2)
Quarter: 2015Q1

REPORT INFORMATION
  Report Type: Spontaneous
  Country: BE (occurrence: BE)
  Receive Date: 20141211
  Receipt Date: 20150115
  Transmission Date: 20150720
  Serious: Yes (Life-Threatening, Disabling, Other)
  Sender: FDA-Public Use
  Company Number: PHHY2014BE159883

PATIENT
  Age: 21 Year
  Sex: Male

DRUGS (1)
  1. AMOXICILLIN SANDOZ [Suspect]
     Active Substance: AMOXICILLIN
     Indication: PRODUCT USED FOR UNKNOWN INDICATION
     Route: 065
     Dates: start: 2007, end: 2007

REACTIONS (13)
  - Fear [Unknown]
  - Anxiety [Unknown]
  - Dizziness [Not Recovered/Not Resolved]
  - Decreased appetite [Unknown]
  - Balance disorder [Not Recovered/Not Resolved]
  - Body mass index decreased [Unknown]
  - Depression [Unknown]
  - Panic attack [Unknown]
  - Respiratory disorder [Recovered/Resolved]
  - Feeling abnormal [Unknown]
  - Gait disturbance [Unknown]
  - Skin plaque [Recovered/Resolved]
  - Hypersensitivity [Unknown]

NARRATIVE: CASE EVENT DATE: 2007
